FAERS Safety Report 5671667-5 (Version None)
Quarter: 2008Q1

REPORT INFORMATION
  Report Type: 
  Country: None (occurrence: None)
  Receive Date: 20080313
  Receipt Date: 20080220
  Transmission Date: 20080703
  Serious: Yes (Hospitalization)
  Sender: FDA-Public Use
  Company Number: 865#9#2008-00003

PATIENT
  Age: 61 Year
  Sex: Male

DRUGS (7)
  1. ROTIGOTINE , PATCH (SILICONE) [Suspect]
     Indication: PARKINSON'S DISEASE
     Dosage: SEE IMAGE
     Route: 062
     Dates: start: 20070711, end: 20070717
  2. ROTIGOTINE , PATCH (SILICONE) [Suspect]
     Indication: PARKINSON'S DISEASE
     Dosage: SEE IMAGE
     Route: 062
     Dates: start: 20070718, end: 20070724
  3. ROTIGOTINE , PATCH (SILICONE) [Suspect]
     Indication: PARKINSON'S DISEASE
     Dosage: SEE IMAGE
     Route: 062
     Dates: start: 20070725
  4. LEVODOPA BENSERAZIDE HYDROCHLO (BENSERAZIDE HYDROCHLORIDE, LEVODOPA) [Concomitant]
  5. SELEGILINE HYDROCHLORIDE [Concomitant]
  6. TAKA-DIASTASE  (DIASTASE, TAKA) [Concomitant]
  7. TRIHEXYPHENIDYL HCL [Concomitant]

REACTIONS (3)
  - ANAEMIA [None]
  - COLONIC POLYP [None]
  - GASTROINTESTINAL HAEMORRHAGE [None]
